FAERS Safety Report 10265823 (Version 1)
Quarter: 2014Q2

REPORT INFORMATION
  Report Type: Spontaneous
  Country: GB (occurrence: GB)
  Receive Date: 20140627
  Receipt Date: 20140627
  Transmission Date: 20141212
  Serious: Yes (Other)
  Sender: FDA-Public Use
  Company Number: GB-WATSON-2014-13697

PATIENT
  Age: 49 Year
  Sex: Female
  Weight: 61 kg

DRUGS (7)
  1. PREDNISONE (UNKNOWN) [Suspect]
     Indication: ASPIRIN-EXACERBATED RESPIRATORY DISEASE
     Dosage: 6 DF, DAILY (FOR 5 DAYS; TAKEN WITH CLARITHROMYCIN)
     Route: 048
     Dates: start: 20140504, end: 20140504
  2. CLARITHROMYCIN (UNKNOWN) [Suspect]
     Indication: LOWER RESPIRATORY TRACT INFECTION
     Dosage: 500 MG, UNK
     Route: 048
     Dates: start: 20140504, end: 20140509
  3. AMLODIPINE [Concomitant]
     Indication: PRODUCT USED FOR UNKNOWN INDICATION
     Dosage: UNK
     Route: 065
  4. INDAPAMIDE [Concomitant]
     Indication: PRODUCT USED FOR UNKNOWN INDICATION
     Dosage: UNK
     Route: 065
  5. RAMIPRIL [Concomitant]
     Indication: PRODUCT USED FOR UNKNOWN INDICATION
     Dosage: UNK
     Route: 065
  6. DOSULEPIN [Concomitant]
     Indication: PRODUCT USED FOR UNKNOWN INDICATION
     Dosage: UNK
     Route: 065
  7. VENLAFAXINE [Concomitant]
     Indication: PRODUCT USED FOR UNKNOWN INDICATION
     Dosage: UNK
     Route: 065

REACTIONS (8)
  - Withdrawal syndrome [Unknown]
  - Palpitations [Not Recovered/Not Resolved]
  - Fatigue [Recovered/Resolved with Sequelae]
  - Agitation [Recovered/Resolved with Sequelae]
  - Headache [Recovered/Resolved with Sequelae]
  - Restlessness [Recovered/Resolved with Sequelae]
  - Insomnia [Recovered/Resolved with Sequelae]
  - Tearfulness [Recovered/Resolved with Sequelae]
